FAERS Safety Report 8991390 (Version 2)
Quarter: 2013Q1

REPORT INFORMATION
  Report Type: Spontaneous
  Country: US (occurrence: US)
  Receive Date: 20121229
  Receipt Date: 20130111
  Transmission Date: 20140127
  Serious: No
  Sender: FDA-Public Use
  Company Number: US-009507513-1212USA011058

PATIENT
  Age: 18 Year
  Sex: Female
  Weight: 36.28 kg

DRUGS (3)
  1. IMPLANON [Suspect]
     Indication: CONTRACEPTION
     Dosage: UNK, ONCE
     Route: 059
     Dates: start: 20120215
  2. ADDERALL TABLETS [Concomitant]
  3. ADDERALL XR [Concomitant]

REACTIONS (1)
  - Unintended pregnancy [Unknown]
